FAERS Safety Report 4543595-X (Version None)
Quarter: 2005Q1

REPORT INFORMATION
  Report Type: 
  Country: None (occurrence: None)
  Receive Date: 20050103
  Receipt Date: 20041115
  Transmission Date: 20050727
  Serious: Yes (Death)
  Sender: FDA-Public Use
  Company Number: JP-GLAXOSMITHKLINE-B0357462A

PATIENT
  Age: 22 Year
  Sex: Female

DRUGS (3)
  1. PAXIL [Suspect]
     Indication: DEPRESSION
     Route: 048
     Dates: start: 20040507
  2. TRYPTANOL [Suspect]
     Indication: DEPRESSION
     Route: 048
     Dates: start: 20040423
  3. SEPAZON [Concomitant]
     Indication: DEPRESSION
     Route: 048
     Dates: start: 20030924

REACTIONS (1)
  - SUDDEN DEATH [None]
